FAERS Safety Report 4381374-7 (Version None)
Quarter: 2004Q2

REPORT INFORMATION
  Report Type: 
  Country: None (occurrence: None)
  Receive Date: 20040617
  Receipt Date: 20040604
  Transmission Date: 20050107
  Serious: No
  Sender: FDA-Public Use
  Company Number: 2004SE03196

PATIENT
  Age: 79 Year
  Sex: Male

DRUGS (7)
  1. CRESTOR [Suspect]
     Indication: HYPERCHOLESTEROLAEMIA
     Dosage: 10 MG QD PO
     Route: 048
     Dates: start: 20040313, end: 20040528
  2. LIPITOR [Suspect]
     Indication: HYPERCHOLESTEROLAEMIA
     Dosage: 10 MG QD PO
     Route: 048
     Dates: start: 20031213, end: 20040312
  3. EMCORETIC [Concomitant]
  4. AMLOR [Concomitant]
  5. ASAFLOW [Concomitant]
  6. ENCONCOR [Concomitant]
  7. MOXON [Concomitant]

REACTIONS (3)
  - HAEMATOMA [None]
  - MUSCLE CRAMP [None]
  - MUSCLE RUPTURE [None]
